FAERS Safety Report 19984994 (Version 1)
Quarter: 2021Q4

REPORT INFORMATION
  Report Type: Spontaneous
  Country: US (occurrence: US)
  Receive Date: 20211022
  Receipt Date: 20211022
  Transmission Date: 20220303
  Serious: Yes (Other)
  Sender: FDA-Public Use
  Company Number: US-DRREDDYS-LIT/USA/21/0142800

PATIENT
  Sex: Female

DRUGS (3)
  1. DIPHENHYDRAMINE HYDROCHLORIDE [Suspect]
     Active Substance: DIPHENHYDRAMINE HYDROCHLORIDE
     Indication: Agitation
     Dosage: GREATER THAN 1.25 G
     Route: 030
  2. LORAZEPAM [Suspect]
     Active Substance: LORAZEPAM
     Indication: Agitation
  3. HALOPERIDOL [Suspect]
     Active Substance: HALOPERIDOL
     Indication: Agitation

REACTIONS (9)
  - Agitation [Unknown]
  - Aggression [Unknown]
  - Delirium [Unknown]
  - Mydriasis [Unknown]
  - Hyperhidrosis [Unknown]
  - Torsade de pointes [Recovered/Resolved]
  - Toxicity to various agents [Unknown]
  - Tachycardia [Unknown]
  - Overdose [Unknown]
